FAERS Safety Report 8965920 (Version 2)
Quarter: 2012Q4

REPORT INFORMATION
  Report Type: 
  Country: DE (occurrence: DE)
  Receive Date: 20121217
  Receipt Date: 20121226
  Transmission Date: 20130627
  Serious: Yes (Congenital Anomaly, Other)
  Sender: FDA-Public Use
  Company Number: GXKR2012DE003812

PATIENT
  Sex: Female
  Weight: 3.42 kg

DRUGS (5)
  1. DICLOFENAC [Suspect]
     Dosage: UNK, in the last 3 to 4 weeks of pregancy
     Route: 064
  2. VENLAFAXINE [Suspect]
     Dosage: Maternal dose: 300 [mg/d (2x150) ]
     Route: 064
     Dates: start: 20110504, end: 20120118
  3. HYPNOREX [Suspect]
     Dosage: Maternal dose: 800 [mg/d (2x400) ]
     Route: 064
     Dates: start: 20110504, end: 20120118
  4. DOPEGYT [Concomitant]
     Dosage: Maternal dose: 750 [mg/d (3x250) ]/ exact begin of therapy not given
     Route: 064
  5. INSULIN [Concomitant]

REACTIONS (7)
  - Atrial septal defect [Unknown]
  - Right ventricular hypertrophy [Recovering/Resolving]
  - Neonatal respiratory distress syndrome [Recovered/Resolved]
  - Meconium in amniotic fluid [Recovered/Resolved]
  - Oxygen saturation decreased [Recovered/Resolved]
  - Foetal heart rate deceleration [Unknown]
  - Foetal exposure during pregnancy [Unknown]
